FAERS Safety Report 24333455 (Version 3)
Quarter: 2024Q4

REPORT INFORMATION
  Report Type: Spontaneous
  Country: JP (occurrence: JP)
  Receive Date: 20240918
  Receipt Date: 20241025
  Transmission Date: 20250114
  Serious: Yes (Death, Hospitalization)
  Sender: ASTELLAS
  Company Number: JP-ASTELLAS-2024-AER-006387

PATIENT
  Age: 8 Decade
  Sex: Male

DRUGS (1)
  1. PADCEV [Suspect]
     Active Substance: ENFORTUMAB VEDOTIN-EJFV
     Indication: Transitional cell carcinoma
     Dosage: ADMINISTERED ONCE WEEKLY FOR 3 CONSECUTIVE WEEKS, INTERRUPTED IN THE 4TH WEEK
     Route: 042
     Dates: start: 20240808, end: 20240815

REACTIONS (1)
  - Hepatitis fulminant [Fatal]

NARRATIVE: CASE EVENT DATE: 20240909
